FAERS Safety Report 14317751 (Version 2)
Quarter: 2018Q1

REPORT INFORMATION
  Report Type: Report from Study
  Country: ES (occurrence: ES)
  Receive Date: 20171222
  Receipt Date: 20180131
  Transmission Date: 20180509
  Serious: Yes (Hospitalization)
  Sender: FDA-Public Use
  Company Number: ES-ROCHE-2043515

PATIENT
  Age: 37 Year
  Sex: Female
  Weight: 57.1 kg

DRUGS (8)
  1. ATEZOLIZUMAB. [Suspect]
     Active Substance: ATEZOLIZUMAB
     Indication: TRANSITIONAL CELL CARCINOMA
     Dosage: DATE OF MOST RECENT DOSE WAS 23/NOV/2017
     Route: 042
     Dates: start: 20170821
  2. CODEINE [Concomitant]
     Active Substance: CODEINE
     Indication: HAEMOPTYSIS
     Route: 048
     Dates: start: 201707
  3. DEXKETOPROFEN [Concomitant]
     Active Substance: DEXKETOPROFEN
     Indication: BACK PAIN
     Route: 048
     Dates: start: 201707
  4. OMEPRAZOL [Concomitant]
     Active Substance: OMEPRAZOLE
     Route: 048
     Dates: start: 20170908
  5. MORPHINE [Concomitant]
     Active Substance: MORPHINE
     Indication: ABDOMINAL PAIN
     Route: 042
     Dates: start: 20171101
  6. PREDNISONE. [Concomitant]
     Active Substance: PREDNISONE
     Indication: HEPATOTOXICITY
     Route: 048
     Dates: start: 20170919
  7. SEPTRIN FORTE [Concomitant]
     Active Substance: SULFAMETHOXAZOLE\TRIMETHOPRIM
     Indication: HEPATOTOXICITY
     Route: 048
     Dates: start: 20170908
  8. PARACETAMOL [Concomitant]
     Active Substance: ACETAMINOPHEN
     Indication: BACK PAIN
     Route: 048
     Dates: start: 201707

REACTIONS (1)
  - Stoma site pain [Not Recovered/Not Resolved]

NARRATIVE: CASE EVENT DATE: 20171213
